FAERS Safety Report 5303415-2 (Version None)
Quarter: 2007Q2

REPORT INFORMATION
  Report Type: 
  Country: None (occurrence: None)
  Receive Date: 20070420
  Receipt Date: 20070413
  Transmission Date: 20071010
  Serious: Yes (Other)
  Sender: FDA-Public Use
  Company Number: CH-ROCHE-493064

PATIENT
  Age: 17 Year
  Sex: Male

DRUGS (1)
  1. ROACCUTAN [Suspect]
     Indication: ACNE
     Dosage: START DATE REPORTED AS END OF 1980'S.
     Route: 048

REACTIONS (4)
  - AFFECTIVE DISORDER [None]
  - CARDIOMEGALY [None]
  - MIGRAINE [None]
  - SCINTILLATING SCOTOMA [None]
